FAERS Safety Report 15598565 (Version 1)
Quarter: 2018Q4

REPORT INFORMATION
  Report Type: Spontaneous
  Country: US (occurrence: US)
  Receive Date: 20181108
  Receipt Date: 20181108
  Transmission Date: 20190205
  Serious: No
  Sender: FDA-Public Use
  Company Number: US-SA-2018SA305329

PATIENT
  Sex: Female

DRUGS (1)
  1. ACT TOTAL CARE SENSITIVE ANTICAVITY MILD MINT MOUTH [Suspect]
     Active Substance: SODIUM FLUORIDE

REACTIONS (1)
  - Medication error [Unknown]
